FAERS Safety Report 23713068 (Version 1)
Quarter: 2024Q2

REPORT INFORMATION
  Report Type: Spontaneous
  Country: US (occurrence: None)
  Receive Date: 20240405
  Receipt Date: 20240405
  Transmission Date: 20240716
  Serious: No
  Sender: FDA-Public Use
  Company Number: None

PATIENT
  Age: 72 Year
  Sex: Female
  Weight: 112.5 kg

DRUGS (12)
  1. ZOLPIDEM TARTRATE [Suspect]
     Active Substance: ZOLPIDEM TARTRATE
     Indication: Major depression
  2. ZOLPIDEM TARTRATE [Suspect]
     Active Substance: ZOLPIDEM TARTRATE
     Indication: Generalised anxiety disorder
  3. VILAZODONE [Concomitant]
     Active Substance: VILAZODONE
  4. BUPROPRION [Concomitant]
  5. SIMVASTATIN [Concomitant]
     Active Substance: SIMVASTATIN
  6. TRAZODONE [Concomitant]
     Active Substance: TRAZODONE HYDROCHLORIDE
  7. HYDROXYZINE [Concomitant]
     Active Substance: HYDROXYZINE HYDROCHLORIDE
  8. QUETIAPINE [Concomitant]
     Active Substance: QUETIAPINE
  9. PANTOPRAZOLE [Concomitant]
     Active Substance: PANTOPRAZOLE
  10. LAMOTROGINE [Concomitant]
  11. PRAMIPEXOLE [Concomitant]
  12. DEVICE [Concomitant]
     Active Substance: DEVICE

REACTIONS (3)
  - Product availability issue [None]
  - Crying [None]
  - Insomnia [None]
